FAERS Safety Report 8368911-2 (Version None)
Quarter: 2012Q2

REPORT INFORMATION
  Report Type: 
  Country: None (occurrence: None)
  Receive Date: 20120516
  Receipt Date: 20120502
  Transmission Date: 20120825
  Serious: Yes (Other)
  Sender: FDA-Public Use
  Company Number: GER/SPN/12/0024225

PATIENT
  Age: 5 Year
  Sex: Female

DRUGS (7)
  1. MYCOPHENOLATE MOFETIL [Suspect]
     Indication: IMMUNOSUPPRESSION
  2. PREDNISOLONE [Suspect]
     Indication: IMMUNOSUPPRESSION
  3. PYRAZINAMIDE [Concomitant]
  4. LEVOFLOXACIN [Suspect]
     Indication: TUBERCULOSIS
  5. CYCLOSPORINE [Suspect]
     Indication: IMMUNOSUPPRESSION
  6. ISONIAZID [Concomitant]
  7. ETHAMBUTOL HYDROCHLORIDE [Concomitant]

REACTIONS (6)
  - LYMPHADENOPATHY MEDIASTINAL [None]
  - ARTHRALGIA [None]
  - HYPERURICAEMIA [None]
  - PULMONARY TUBERCULOSIS [None]
  - MEDIASTINAL DISORDER [None]
  - HILAR LYMPHADENOPATHY [None]
